FAERS Safety Report 15224946 (Version 1)
Quarter: 2018Q3

REPORT INFORMATION
  Report Type: Spontaneous
  Country: FR (occurrence: FR)
  Receive Date: 20180801
  Receipt Date: 20180801
  Transmission Date: 20181010
  Serious: Yes (Hospitalization)
  Sender: FDA-Public Use
  Company Number: FR-SUN PHARMACEUTICAL INDUSTRIES LTD-2018R1-179851

PATIENT
  Age: 28 Year
  Sex: Male
  Weight: 72 kg

DRUGS (9)
  1. VALIUM [Concomitant]
     Active Substance: DIAZEPAM
     Indication: EPILEPSY
     Dosage: 40 MG, DAILY (10 MG : 1X4 JOUR)
     Route: 048
     Dates: start: 2015
  2. PULMODEXANE 30 MG, COMPRIME PELLICULE [Concomitant]
     Indication: PRODUCT USED FOR UNKNOWN INDICATION
     Dosage: 210 MG, DAILY (2?3?2)
     Route: 048
     Dates: start: 2007
  3. CIRCADIN [Concomitant]
     Active Substance: MELATONIN
     Indication: INSOMNIA
     Dosage: 2 MG, DAILY
     Route: 048
     Dates: start: 2016
  4. LAMICTAL [Concomitant]
     Active Substance: LAMOTRIGINE
     Indication: EPILEPSY
     Dosage: 400 MG, DAILY (2?0?2)
     Route: 048
     Dates: start: 2007
  5. CETIRIZINE (DICHLORHYDRATE DE) [Concomitant]
     Active Substance: CETIRIZINE HYDROCHLORIDE
     Indication: HYPERSENSITIVITY
     Dosage: 10 MG, DAILY (1?0?0)
     Route: 048
     Dates: start: 2016
  6. RISPERIDONE. [Suspect]
     Active Substance: RISPERIDONE
     Indication: PSYCHOTIC DISORDER
     Dosage: 6 MG, DAILY (1?1?1)
     Route: 048
     Dates: start: 2007, end: 20180307
  7. LOXAPAC [Suspect]
     Active Substance: LOXAPINE
     Indication: PSYCHOTIC DISORDER
     Dosage: 140 GTT, DAILY
     Route: 048
     Dates: start: 2016, end: 20180307
  8. ATARAX [Concomitant]
     Active Substance: HYDROXYZINE HYDROCHLORIDE
     Indication: INSOMNIA
     Dosage: 75 MG, DAILY (1?0?2)
     Route: 048
     Dates: start: 2015
  9. TRANXENE 20 MG, GELULE [Concomitant]
     Indication: ANXIETY
     Dosage: 40 MG, DAILY
     Route: 048
     Dates: start: 2016

REACTIONS (1)
  - Colitis ischaemic [Unknown]

NARRATIVE: CASE EVENT DATE: 20180307
